FAERS Safety Report 5737874-8 (Version None)
Quarter: 2008Q2

REPORT INFORMATION
  Report Type: 
  Country: None (occurrence: None)
  Receive Date: 20080512
  Receipt Date: 20080512
  Transmission Date: 20081010
  Serious: Yes (Life-Threatening, Congenital Anomaly)
  Sender: FDA-Public Use
  Company Number: None

PATIENT
  Age: 44 Year
  Sex: Male
  Weight: 81.6475 kg

DRUGS (1)
  1. DILANTIN [Suspect]
     Indication: CONVULSION
     Dosage: 200 MG        BID       IV
     Route: 042
     Dates: start: 20080415

REACTIONS (3)
  - BRUGADA SYNDROME [None]
  - CARDIAC ARREST [None]
  - VENTRICULAR FIBRILLATION [None]
